FAERS Safety Report 5119885-9 (Version None)
Quarter: 2006Q3

REPORT INFORMATION
  Report Type: 
  Country: None (occurrence: None)
  Receive Date: 20060929
  Receipt Date: 20060913
  Transmission Date: 20061208
  Serious: Yes (Death, Other)
  Sender: FDA-Public Use
  Company Number: 8018865

PATIENT
  Age: 24 Month
  Sex: Male

DRUGS (1)
  1. TUSSIONEX [Suspect]

REACTIONS (3)
  - DYSPNOEA [None]
  - MULTIPLE DRUG OVERDOSE [None]
  - VICTIM OF HOMICIDE [None]
